FAERS Safety Report 4289898-8 (Version None)
Quarter: 2004Q1

REPORT INFORMATION
  Report Type: 
  Country: None (occurrence: None)
  Receive Date: 20040209
  Receipt Date: 20040130
  Transmission Date: 20041129
  Serious: Yes (Hospitalization, Other)
  Sender: FDA-Public Use
  Company Number: HQWYE756030JAN04

PATIENT
  Age: 14 Month
  Sex: Female

DRUGS (4)
  1. CHILDREN'S ADVIL [Suspect]
     Indication: EAR INFECTION
     Dosage: 80 MG 4 TIMES DAILY
     Route: 048
     Dates: start: 20021207, end: 20021209
  2. CHILDREN'S ADVIL [Suspect]
     Indication: PYREXIA
     Dosage: 80 MG 4 TIMES DAILY
     Route: 048
     Dates: start: 20021207, end: 20021209
  3. ACETAMINOPHEN [Concomitant]
  4. OROKEN (CEFIXIME) [Concomitant]

REACTIONS (2)
  - MASTOIDITIS [None]
  - STAPHYLOCOCCAL INFECTION [None]
